FAERS Safety Report 15319565 (Version 1)
Quarter: 2018Q4

REPORT INFORMATION
  Report Type: Spontaneous
  Country: FR (occurrence: FR)
  Receive Date: 20180827
  Receipt Date: 20180827
  Transmission Date: 20190204
  Serious: Yes (Hospitalization)
  Sender: FDA-Public Use
  Company Number: FR-TEVA-2018-FR-947207

PATIENT
  Age: 73 Year
  Sex: Female

DRUGS (5)
  1. PARACETAMOL [Suspect]
     Active Substance: ACETAMINOPHEN
     Indication: SUICIDE ATTEMPT
     Route: 048
     Dates: start: 20180514, end: 20180514
  2. EFFEXOR XR [Suspect]
     Active Substance: VENLAFAXINE HYDROCHLORIDE
     Indication: SUICIDE ATTEMPT
     Dosage: NOT INFORMED? EXTENDED RELEASE CAPSULE
     Route: 048
     Dates: start: 20180514, end: 20180514
  3. IZALGI [Suspect]
     Active Substance: ACETAMINOPHEN\OPIUM
     Indication: SUICIDE ATTEMPT
     Dosage: NOT INFORMED
     Route: 048
     Dates: start: 20180514, end: 20180514
  4. RAMIPRIL. [Concomitant]
     Active Substance: RAMIPRIL
     Indication: SUICIDE ATTEMPT
     Dosage: NOT INFORMED
     Route: 048
     Dates: start: 20180514, end: 20180514
  5. ZOLPIDEM [Suspect]
     Active Substance: ZOLPIDEM\ZOLPIDEM TARTRATE
     Indication: SUICIDE ATTEMPT
     Route: 048
     Dates: start: 20180514, end: 20180514

REACTIONS (3)
  - Hypertension [Recovered/Resolved]
  - Somnolence [Recovered/Resolved]
  - Toxicity to various agents [Recovered/Resolved]

NARRATIVE: CASE EVENT DATE: 20180514
